FAERS Safety Report 24373151 (Version 3)
Quarter: 2024Q4

REPORT INFORMATION
  Report Type: Spontaneous
  Country: GB (occurrence: GB)
  Receive Date: 20240927
  Receipt Date: 20241206
  Transmission Date: 20250115
  Serious: Yes (Hospitalization, Other)
  Sender: TORRENT PHARMA INC.
  Company Number: GB-TORRENT-00038037

PATIENT
  Age: 61 Year
  Sex: Male

DRUGS (14)
  1. ARIPIPRAZOLE [Suspect]
     Active Substance: ARIPIPRAZOLE
     Indication: Neuropsychological symptoms
     Dosage: UNKNOWN
     Route: 065
  2. QUETIAPINE [Suspect]
     Active Substance: QUETIAPINE
     Indication: Psychotic symptom
     Dosage: UNKNOWN
     Route: 065
  3. RISPERIDONE [Suspect]
     Active Substance: RISPERIDONE
     Indication: Neuropsychological symptoms
     Dosage: UNKNOWN
     Route: 065
     Dates: start: 202106, end: 2021
  4. RIVASTIGMINE [Suspect]
     Active Substance: RIVASTIGMINE
     Indication: Psychotic symptom
     Dosage: UNKNOWN
     Route: 065
  5. LORAZEPAM [Suspect]
     Active Substance: LORAZEPAM
     Indication: Catatonia
     Dosage: UNKNOWN
     Route: 065
  6. OLANZAPINE [Suspect]
     Active Substance: OLANZAPINE
     Indication: Neuropsychological symptoms
     Dosage: UNKNOWN
     Route: 065
     Dates: start: 202106, end: 202106
  7. PREGABALIN [Suspect]
     Active Substance: PREGABALIN
     Indication: Anxiety
     Dosage: UNKNOWN
     Route: 065
  8. PROCYCLIDINE [Suspect]
     Active Substance: PROCYCLIDINE
     Indication: Neuropsychological symptoms
     Dosage: UNKNOWN
     Route: 065
  9. SERTRALINE [Suspect]
     Active Substance: SERTRALINE HYDROCHLORIDE
     Indication: Depressive symptom
     Dosage: UNKNOWN
     Route: 065
  10. CHOLECALCIFEROL [Concomitant]
     Active Substance: CHOLECALCIFEROL
     Indication: Vitamin D deficiency
     Dosage: UNKNOWN
     Route: 065
  11. DIAZEPAM [Concomitant]
     Active Substance: DIAZEPAM
     Indication: Clonic convulsion
     Dosage: UNKNOWN
     Route: 054
  12. LEVOTHYROXINE [Concomitant]
     Active Substance: LEVOTHYROXINE
     Indication: Hypothyroidism
     Dosage: UNKNOWN
     Route: 065
  13. RIVASTIGMINE [Concomitant]
     Active Substance: RIVASTIGMINE
     Indication: Parkinson^s disease
     Dosage: UNKNOWN
     Route: 065
  14. SINEMET [Concomitant]
     Active Substance: CARBIDOPA\LEVODOPA
     Indication: Dementia with Lewy bodies
     Dosage: UNKNOWN
     Route: 065

REACTIONS (12)
  - Extrapyramidal disorder [Recovered/Resolved]
  - Condition aggravated [Recovered/Resolved]
  - Weight decreased [Unknown]
  - Loss of personal independence in daily activities [Unknown]
  - Psychotic disorder [Recovered/Resolved]
  - Gastrointestinal disorder [Unknown]
  - Dizziness [Unknown]
  - Dry mouth [Unknown]
  - Sexual dysfunction [Unknown]
  - Drug ineffective [Unknown]
  - Dystonia [Unknown]
  - Akathisia [Unknown]

NARRATIVE: CASE EVENT DATE: 20210601
